FAERS Safety Report 20645049 (Version 1)
Quarter: 2022Q1

REPORT INFORMATION
  Report Type: Spontaneous
  Country: US (occurrence: None)
  Receive Date: 20220328
  Receipt Date: 20220328
  Transmission Date: 20220423
  Serious: Yes (Hospitalization, Disabling)
  Sender: FDA-Public Use
  Company Number: None

PATIENT
  Age: 81 Year
  Sex: Female

DRUGS (1)
  1. TEPEZZA [Suspect]
     Active Substance: TEPROTUMUMAB-TRBW
     Indication: Basedow^s disease
     Dates: start: 20210716, end: 20210916

REACTIONS (11)
  - Seizure [None]
  - Asthenia [None]
  - Hypopnoea [None]
  - Heart rate decreased [None]
  - Muscle spasms [None]
  - Memory impairment [None]
  - Gait inability [None]
  - Nasal congestion [None]
  - Rhinorrhoea [None]
  - Hypoacusis [None]
  - Taste disorder [None]

NARRATIVE: CASE EVENT DATE: 20211001
